FAERS Safety Report 7475292-5 (Version None)
Quarter: 2011Q2

REPORT INFORMATION
  Report Type: 
  Country: None (occurrence: None)
  Receive Date: 20110509
  Receipt Date: 20110509
  Transmission Date: 20111010
  Serious: Yes (Hospitalization)
  Sender: FDA-Public Use
  Company Number: None

PATIENT
  Sex: Female
  Weight: 71.6683 kg

DRUGS (1)
  1. ATENOLOL [Suspect]
     Indication: ATRIAL FIBRILLATION
     Dosage: 25MG 1 DAILY ORAL
     Route: 048
     Dates: start: 20030101, end: 20040416

REACTIONS (2)
  - NO THERAPEUTIC RESPONSE [None]
  - HEART RATE INCREASED [None]
